FAERS Safety Report 10047538 (Version 1)
Quarter: 2014Q1

REPORT INFORMATION
  Report Type: Spontaneous
  Country: US (occurrence: None)
  Receive Date: 20140328
  Receipt Date: 20140328
  Transmission Date: 20141002
  Serious: Yes (Hospitalization)
  Sender: FDA-Public Use
  Company Number: None

PATIENT
  Sex: Female

DRUGS (6)
  1. AFINITOR [Suspect]
     Route: 048
     Dates: start: 20130914, end: 20131212
  2. HALAVEN [Suspect]
     Dosage: 1 MG/2 ML VIAL DAYS 1 + 8 OF 21 DAYS, IV
     Dates: start: 20140208, end: 201403
  3. CITRACAL [Concomitant]
  4. OMEGA 3-6-9 [Concomitant]
  5. OCUVITE PRESERVISION [Concomitant]
  6. CENTRUM [Concomitant]

REACTIONS (1)
  - Cardiac failure congestive [None]
